FAERS Safety Report 16340537 (Version 1)
Quarter: 2019Q2

REPORT INFORMATION
  Report Type: Spontaneous
  Country: CA (occurrence: CA)
  Receive Date: 20190522
  Receipt Date: 20190522
  Transmission Date: 20190711
  Serious: Yes (Hospitalization, Disabling)
  Sender: FDA-Public Use
  Company Number: CA-AUROBINDO-AUR-APL-2019-027425

PATIENT

DRUGS (4)
  1. QUETIAPINE FILM-COATED TABLET [Suspect]
     Active Substance: QUETIAPINE
     Indication: OPPOSITIONAL DEFIANT DISORDER
     Dosage: 25.0 MILLIGRAM, TWO TIMES A DAY
     Route: 048
  2. LAMOTRIGINE. [Concomitant]
     Active Substance: LAMOTRIGINE
     Indication: PRODUCT USED FOR UNKNOWN INDICATION
     Dosage: UNK
     Route: 048
  3. VALPROIC ACID. [Concomitant]
     Active Substance: VALPROIC ACID
     Indication: PRODUCT USED FOR UNKNOWN INDICATION
     Dosage: UNK
     Route: 065
  4. CONCERTA [Suspect]
     Active Substance: METHYLPHENIDATE HYDROCHLORIDE
     Indication: ATTENTION DEFICIT/HYPERACTIVITY DISORDER
     Dosage: 18.0 MILLIGRAM, ONCE A DAY
     Route: 048

REACTIONS (5)
  - Toxicity to various agents [Recovering/Resolving]
  - Gait inability [Recovering/Resolving]
  - Dyskinesia [Recovering/Resolving]
  - Tremor [Recovering/Resolving]
  - Extrapyramidal disorder [Recovering/Resolving]
